FAERS Safety Report 23122977 (Version 1)
Quarter: 2023Q4

REPORT INFORMATION
  Report Type: Spontaneous
  Country: CN (occurrence: CN)
  Receive Date: 20231030
  Receipt Date: 20231030
  Transmission Date: 20240109
  Serious: Yes (Other)
  Sender: FDA-Public Use
  Company Number: CN-SA-SAC20231026001448

PATIENT
  Age: 51 Year
  Sex: Female

DRUGS (3)
  1. OXALIPLATIN [Suspect]
     Active Substance: OXALIPLATIN
     Indication: Colon cancer
     Dosage: 200.000000 MG , 1X
     Route: 041
     Dates: start: 20230915, end: 20230915
  2. BEVACIZUMAB [Concomitant]
     Active Substance: BEVACIZUMAB
     Dosage: UNK
  3. CAPECITABINE [Concomitant]
     Active Substance: CAPECITABINE
     Indication: Colon cancer
     Dosage: 1.500000 G
     Route: 048

REACTIONS (1)
  - Drug-induced liver injury [Recovered/Resolved]

NARRATIVE: CASE EVENT DATE: 20231008
